FAERS Safety Report 10872693 (Version 3)
Quarter: 2015Q1

REPORT INFORMATION
  Report Type: Spontaneous
  Country: JP (occurrence: JP)
  Receive Date: 20150227
  Receipt Date: 20150317
  Transmission Date: 20150721
  Serious: Yes (Other)
  Sender: FDA-Public Use
  Company Number: JP-PFIZER INC-2014261564

PATIENT
  Sex: Male

DRUGS (3)
  1. LYRICA [Suspect]
     Active Substance: PREGABALIN
     Dosage: 25 MG, 2X/DAY
     Route: 048
     Dates: start: 2014, end: 20141218
  2. LYRICA [Suspect]
     Active Substance: PREGABALIN
     Indication: TRIGEMINAL NEURALGIA
     Dosage: 50 MG, DAILY
     Route: 048
     Dates: start: 2012
  3. LYRICA [Suspect]
     Active Substance: PREGABALIN
     Dosage: 50 MG, 2X/DAY
     Route: 048
     Dates: start: 201406, end: 2014

REACTIONS (6)
  - Chest pain [Unknown]
  - Eye pain [Unknown]
  - Oropharyngeal pain [Unknown]
  - Blood creatine phosphokinase MB increased [Recovering/Resolving]
  - Swelling face [Recovered/Resolved]
  - Eye oedema [Unknown]

NARRATIVE: CASE EVENT DATE: 201408
